FAERS Safety Report 5271233-X (Version None)
Quarter: 2007Q1

REPORT INFORMATION
  Report Type: 
  Country: None (occurrence: None)
  Receive Date: 20061214
  Receipt Date: 20060119
  Transmission Date: 20070707
  Serious: Yes (Hospitalization, Other)
  Sender: FDA-Public Use
  Company Number: 2005114512

PATIENT
  Age: 54 Year
  Sex: Male
  Weight: 157.8518 kg

DRUGS (12)
  1. BEXTRA [Suspect]
     Indication: INFLAMMATION
     Dosage: 20 MG (20 MG,1 IN 1 D)
     Dates: start: 20020327
  2. BEXTRA [Suspect]
     Indication: INTERVERTEBRAL DISC PROTRUSION
     Dosage: 20 MG (20 MG,1 IN 1 D)
     Dates: start: 20020327
  3. BEXTRA [Suspect]
     Indication: OSTEOARTHRITIS
     Dosage: 20 MG (20 MG,1 IN 1 D)
     Dates: start: 20020327
  4. VIOXX [Suspect]
     Indication: INTERVERTEBRAL DISC PROTRUSION
     Dosage: 12.5 MG (12.5 MG,1 IN 1 D)
     Dates: start: 20010524, end: 20020321
  5. VIOXX [Suspect]
     Indication: OSTEOARTHRITIS
     Dosage: 12.5 MG (12.5 MG,1 IN 1 D)
     Dates: start: 20010524, end: 20020321
  6. ADVAIR DISKUS 100/50 [Concomitant]
  7. ZYRTEC [Concomitant]
  8. LASIX [Concomitant]
  9. ALTACE [Concomitant]
  10. PREVACID [Concomitant]
  11. ZOLOFT [Concomitant]
  12. ZESTRIL [Concomitant]

REACTIONS (2)
  - DEEP VEIN THROMBOSIS [None]
  - PULMONARY EMBOLISM [None]
